FAERS Safety Report 16043467 (Version 5)
Quarter: 2020Q2

REPORT INFORMATION
  Report Type: Report from Study
  Country: GB (occurrence: GB)
  Receive Date: 20190306
  Receipt Date: 20200403
  Transmission Date: 20200713
  Serious: Yes (Death, Other)
  Sender: FDA-Public Use
  Company Number: GB-PFIZER INC-2019090944

PATIENT
  Age: 78 Year
  Sex: Female

DRUGS (51)
  1. TAMOXIFEN [Suspect]
     Active Substance: TAMOXIFEN
     Indication: BREAST CANCER METASTATIC
     Dosage: 20 MG, 1X/DAY
     Route: 048
     Dates: start: 20180704, end: 20180915
  2. ATORVASTATIN [Concomitant]
     Active Substance: ATORVASTATIN
     Dosage: 20 MG, 1X/DAY
     Route: 048
  3. ZOLEDRONIC ACID [Concomitant]
     Active Substance: ZOLEDRONIC ACID
     Dosage: 3 MG, UNK
     Route: 042
     Dates: start: 20190510, end: 20190529
  4. DOMPERIDONE [Concomitant]
     Active Substance: DOMPERIDONE
     Dosage: 10 MG, 3X/DAY
     Route: 048
     Dates: start: 20160225
  5. TRASTUZUMAB. [Suspect]
     Active Substance: TRASTUZUMAB
     Dosage: 400 MG, EVERY 3 WEEKS (MAINTAINENCE DOSE.)
     Route: 042
     Dates: start: 20160225, end: 20160617
  6. CHLORHEXIDINE GLUCONATE. [Concomitant]
     Active Substance: CHLORHEXIDINE GLUCONATE
     Dosage: 0.2 %, (MOUTH WASH) EVERY 0.25 DAY
     Route: 048
     Dates: start: 20160225
  7. DOCUSATE SODIUM. [Concomitant]
     Active Substance: DOCUSATE SODIUM
     Dosage: 200 MG, EVERY 0.5DAY
     Route: 048
  8. METOCLOPRAMIDE. [Concomitant]
     Active Substance: METOCLOPRAMIDE
     Dosage: 10 MG, 3X/DAY
     Route: 048
  9. GLICLAZIDE [Concomitant]
     Active Substance: GLICLAZIDE
     Dosage: 80 MG, DAILY
     Route: 048
     Dates: start: 201809, end: 20190424
  10. TRASTUZUMAB EMTANSINE [Suspect]
     Active Substance: ADO-TRASTUZUMAB EMTANSINE
     Indication: BREAST CANCER METASTATIC
     Dosage: 220 MG, EVERY 3 WEEKS
     Route: 042
     Dates: start: 20180928, end: 20190315
  11. ZOLEDRONIC ACID [Concomitant]
     Active Substance: ZOLEDRONIC ACID
     Dosage: 3.3 MG, UNK
     Route: 042
     Dates: start: 20170209, end: 20170323
  12. TINZAPARIN [Concomitant]
     Active Substance: TINZAPARIN
     Dosage: 1 UNK, 1X/DAY (11000 UNIT)
     Route: 058
     Dates: start: 20180915, end: 20181128
  13. MAGNESIUM GLYCEROPHOSPHATE [Concomitant]
     Active Substance: MAGNESIUM GLYCEROPHOSPHATE
     Indication: HYPOMAGNESAEMIA
     Dosage: 4 MMOL, 3X/DAY
     Route: 048
     Dates: start: 20160526, end: 20160530
  14. AMLODIPINE [Concomitant]
     Active Substance: AMLODIPINE BESYLATE
     Indication: HYPERTENSION
     Dosage: 5 MG, DAILY
     Route: 048
  15. ZOPICLONE [Concomitant]
     Active Substance: ZOPICLONE
     Dosage: 3.75 MG, 1X/DAY
     Route: 048
     Dates: start: 20160217
  16. METFORMIN [Concomitant]
     Active Substance: METFORMIN HYDROCHLORIDE
     Dosage: 1000 MG, EVERY 0.5DAY
     Route: 048
  17. ZOLEDRONIC ACID [Concomitant]
     Active Substance: ZOLEDRONIC ACID
     Dosage: 3.3 MG, MONTHLY
     Route: 042
     Dates: start: 20160226
  18. ZOLEDRONIC ACID [Concomitant]
     Active Substance: ZOLEDRONIC ACID
     Dosage: 3.5 MG, UNK EVERY 3-4 WEEKS FOR 9 CYCLES THEN 3 MONTS
     Route: 042
     Dates: start: 20160414, end: 20170112
  19. PHOSPHATE SANDOZ [Concomitant]
     Active Substance: SODIUM PHOSPHATE, MONOBASIC, ANHYDROUS
     Indication: HYPOPHOSPHATAEMIA
     Dosage: 2 DF, 3X/DAY(2 TABLETS EVERY 0.33 DAY )
     Route: 048
     Dates: start: 20190611, end: 20190614
  20. POTASSIUM CHLORIDE. [Concomitant]
     Active Substance: POTASSIUM CHLORIDE
     Indication: BLOOD POTASSIUM DECREASED
     Dosage: 1 UNK, AS NEEDED, MMOL/L (EVERY 3-4 WEEKS FOR 9 CYCLES THEN 3 MONTS)
     Route: 042
     Dates: start: 20190611, end: 20190620
  21. LETROZOLE. [Suspect]
     Active Substance: LETROZOLE
     Indication: BREAST CANCER METASTATIC
     Dosage: 2.5 MG, 1X/DAY
     Route: 048
     Dates: start: 20160413, end: 20180704
  22. RIVAROXABAN [Concomitant]
     Active Substance: RIVAROXABAN
     Dosage: 1, 1X/DAY
     Route: 048
     Dates: start: 20181128
  23. SANDO K [POTASSIUM CHLORIDE] [Concomitant]
     Dosage: 2 TABLETS, EVERY 3-4 WEEKS FOR 9 CYCLES THEN 3 MONTS
     Route: 048
     Dates: start: 20160322, end: 20160326
  24. OCTASA [Concomitant]
     Active Substance: MESALAMINE
     Indication: GASTROINTESTINAL MOTILITY DISORDER
     Dosage: 800 MG, 3X/DAY
     Route: 065
     Dates: start: 20170523, end: 2017
  25. CINACALCET. [Concomitant]
     Active Substance: CINACALCET
     Indication: HYPERCALCAEMIA OF MALIGNANCY
     Dosage: 30 MG, DAILY
     Route: 048
     Dates: start: 20190413
  26. GLICLAZIDE [Concomitant]
     Active Substance: GLICLAZIDE
     Dosage: 80 MG, DAILY
     Route: 048
     Dates: start: 20190425, end: 201905
  27. GLICLAZIDE [Concomitant]
     Active Substance: GLICLAZIDE
     Dosage: 40 MG, DAILY
     Route: 048
     Dates: start: 20190620, end: 20190705
  28. TRASTUZUMAB. [Suspect]
     Active Substance: TRASTUZUMAB
     Dosage: 350 MG, EVERY 3 WEEKS
     Route: 042
     Dates: start: 20160707, end: 20180822
  29. PERTUZUMAB. [Suspect]
     Active Substance: PERTUZUMAB
     Indication: BREAST CANCER METASTATIC
     Dosage: 840 MG, EVERY 3 WEEKS (LOADING DOSE)
     Route: 042
     Dates: start: 20160225, end: 20160225
  30. DEXAMETHASONE. [Concomitant]
     Active Substance: DEXAMETHASONE
     Dosage: 8 MG, 2X/DAY
     Route: 048
     Dates: start: 20160225
  31. MACROGOL [Concomitant]
     Active Substance: POLYETHYLENE GLYCOLS
     Dosage: 2 UNK, 1X/DAY (SACHET)
     Route: 065
  32. DIPROBASE [PARAFFIN, LIQUID;WHITE SOFT PARAFFIN] [Concomitant]
     Indication: RASH PRURITIC
  33. PHOSPHATE SANDOZ [Concomitant]
     Active Substance: SODIUM PHOSPHATE, MONOBASIC, ANHYDROUS
     Indication: BLOOD PHOSPHORUS DECREASED
     Dosage: UNK
     Route: 048
     Dates: start: 20190423, end: 20190425
  34. DENOSUMAB [Concomitant]
     Active Substance: DENOSUMAB
     Dosage: 120 MG, EVERY 3-4 WEEKS
     Route: 058
     Dates: start: 20180110, end: 20190426
  35. BENZYDAMINE HYDROCHLORIDE [Concomitant]
     Active Substance: BENZYDAMINE HYDROCHLORIDE
     Indication: GLOSSODYNIA
  36. ACTRAPID [Concomitant]
     Active Substance: INSULIN HUMAN
     Dosage: UNK
     Route: 058
     Dates: start: 20190620, end: 20190705
  37. SITAGLIPTIN [Concomitant]
     Active Substance: SITAGLIPTIN
     Dosage: 100 MG, 1X/DAY
     Route: 048
  38. TRAMADOL HYDROCHLORIDE. [Concomitant]
     Active Substance: TRAMADOL HYDROCHLORIDE
     Dosage: 50 MG, 4X/DAY (EVERY 0.25 DAY)
     Route: 048
     Dates: start: 20160217
  39. ZOLEDRONIC ACID [Concomitant]
     Active Substance: ZOLEDRONIC ACID
     Dosage: 3 MG, UNK
     Route: 042
     Dates: start: 20170628, end: 20171220
  40. LINAGLIPTIN [Concomitant]
     Active Substance: LINAGLIPTIN
     Dosage: 5 MG, DAILY
     Route: 048
     Dates: start: 201809, end: 201905
  41. POTASSIUM BICARBONATE;SODIUM BICARBONATE;SODIUM PHOSPHATE MONOBASIC (A [Concomitant]
     Indication: HYPOPHOSPHATAEMIA
     Dosage: 2 DF, 3X/DAY
     Route: 048
     Dates: start: 20190611, end: 20190614
  42. DOCETAXEL. [Suspect]
     Active Substance: DOCETAXEL
     Indication: BREAST CANCER METASTATIC
     Dosage: 65 MG, EVERY 3 WEEKS
     Route: 042
     Dates: start: 20160226, end: 20160226
  43. TRASTUZUMAB. [Suspect]
     Active Substance: TRASTUZUMAB
     Indication: BREAST CANCER METASTATIC
     Dosage: 525 MG, EVERY 3 WEEKS (LOADING DOSE)
     Route: 042
     Dates: start: 20160225, end: 20160225
  44. PERTUZUMAB. [Suspect]
     Active Substance: PERTUZUMAB
     Dosage: 420 MG, EVERY 3 WEEKS (MAINTAINENCE DOSE)
     Route: 042
     Dates: start: 20160225, end: 20180704
  45. NERATINIB [Suspect]
     Active Substance: NERATINIB
     Dosage: 240 MG, DAILY
     Route: 048
     Dates: start: 20190403
  46. LOPERAMIDE [Concomitant]
     Active Substance: LOPERAMIDE
     Dosage: 2 MG, AS NEEDED
     Route: 048
     Dates: start: 20160225
  47. CANDESARTAN. [Concomitant]
     Active Substance: CANDESARTAN
     Dosage: 8 MG, 1X/DAY
     Route: 048
  48. ZOLEDRONIC ACID [Concomitant]
     Active Substance: ZOLEDRONIC ACID
     Dosage: 3.5 MG, UNK
     Route: 042
     Dates: start: 20190408, end: 20190408
  49. BUDESONIDE. [Concomitant]
     Active Substance: BUDESONIDE
     Dosage: 9 MG, DAILY
     Route: 048
     Dates: start: 20190403, end: 20190523
  50. TRIMETHOPRIM. [Concomitant]
     Active Substance: TRIMETHOPRIM
     Indication: URINARY TRACT INFECTION
     Dosage: UNK
     Route: 048
     Dates: start: 20190412, end: 20190414
  51. AMLODIPINE [Concomitant]
     Active Substance: AMLODIPINE BESYLATE
     Dosage: 5 MG, DAILY
     Dates: start: 20180915, end: 20190529

REACTIONS (14)
  - Diarrhoea [Recovered/Resolved]
  - Weight decreased [Not Recovered/Not Resolved]
  - Acute kidney injury [Recovered/Resolved]
  - Hypomagnesaemia [Recovered/Resolved]
  - Rash pruritic [Recovered/Resolved]
  - Cholelithiasis [Not Recovered/Not Resolved]
  - Rectal haemorrhage [Not Recovered/Not Resolved]
  - Weight decreased [Recovered/Resolved]
  - Diarrhoea [Recovered/Resolved]
  - Vomiting [Recovered/Resolved]
  - Diarrhoea [Recovered/Resolved]
  - Back pain [Not Recovered/Not Resolved]
  - Decreased appetite [Not Recovered/Not Resolved]
  - Diarrhoea [Recovered/Resolved]

NARRATIVE: CASE EVENT DATE: 20160323
